FAERS Safety Report 8924552 (Version 2)
Quarter: 2012Q4

REPORT INFORMATION
  Report Type: 
  Country: CA (occurrence: CA)
  Receive Date: 20121127
  Receipt Date: 20121205
  Transmission Date: 20130627
  Serious: Yes (Hospitalization)
  Sender: FDA-Public Use
  Company Number: CA-AMGEN-CANSP2012075523

PATIENT
  Age: 53 Year
  Sex: Female

DRUGS (12)
  1. PROLIA [Suspect]
     Indication: OSTEOPOROSIS POSTMENOPAUSAL
     Dosage: UNK
     Dates: start: 20120827
  2. SPIRIVA [Concomitant]
     Indication: ASTHMA
  3. VENTOLIN                           /00139501/ [Concomitant]
     Indication: ASTHMA
  4. SYMBICORT [Concomitant]
     Indication: ASTHMA
  5. IBUPROFEN [Concomitant]
     Indication: PAIN
  6. BUTRANS                            /00444001/ [Concomitant]
     Indication: PAIN
  7. CODEINE [Concomitant]
     Indication: PAIN
  8. ATIVAN [Concomitant]
     Indication: SLEEP DISORDER
  9. ZOPICLONE [Concomitant]
     Indication: SLEEP DISORDER
  10. SYNTHROID [Concomitant]
     Indication: HYPOTHYROIDISM
  11. NICOTINE [Concomitant]
     Indication: TOBACCO WITHDRAWAL SYMPTOMS
     Route: 062
  12. VENTOLIN                           /00139501/ [Concomitant]

REACTIONS (2)
  - Pneumonia [Recovered/Resolved]
  - Oedema peripheral [Recovered/Resolved]
